FAERS Safety Report 6165660-6 (Version None)
Quarter: 2009Q2

REPORT INFORMATION
  Report Type: 
  Country: None (occurrence: None)
  Receive Date: 20090423
  Receipt Date: 20090414
  Transmission Date: 20091009
  Serious: Yes (Disabling)
  Sender: FDA-Public Use
  Company Number: DK-SANOFI-SYNTHELABO-A01200904110

PATIENT
  Age: 58 Year
  Sex: Female

DRUGS (2)
  1. HJERDYL [Concomitant]
     Indication: DRUG USE FOR UNKNOWN INDICATION
     Dosage: UNK
     Route: 048
  2. PLAVIX [Suspect]
     Indication: ACUTE MYOCARDIAL INFARCTION
     Route: 048
     Dates: start: 20080401, end: 20090405

REACTIONS (2)
  - AGEUSIA [None]
  - ANOSMIA [None]
